FAERS Safety Report 6388559-9 (Version None)
Quarter: 2009Q4

REPORT INFORMATION
  Report Type: 
  Country: None (occurrence: None)
  Receive Date: 20091005
  Receipt Date: 20090930
  Transmission Date: 20100525
  Serious: Yes (Death)
  Sender: FDA-Public Use
  Company Number: JP-ASTRAZENECA-2009SE10073

PATIENT
  Age: 38 Year
  Sex: Female
  Weight: 46 kg

DRUGS (13)
  1. DIPRIVAN [Suspect]
     Indication: CONVULSION PROPHYLAXIS
     Dosage: 1MG/KG/HR-7.4MG/KG/HR
     Route: 042
     Dates: start: 20090215, end: 20090217
  2. THIOPENTAL SODIUM [Suspect]
     Indication: CONVULSION PROPHYLAXIS
     Route: 042
     Dates: start: 20090217, end: 20090219
  3. PASETOCIN [Concomitant]
     Indication: NASOPHARYNGITIS
     Route: 048
     Dates: start: 20090210, end: 20090214
  4. LOXONIN [Concomitant]
     Indication: NASOPHARYNGITIS
     Route: 048
     Dates: start: 20090210, end: 20090214
  5. ROCEMERCK [Concomitant]
     Indication: MENINGOENCEPHALITIS BACTERIAL
     Route: 042
     Dates: start: 20090214
  6. ACYCLOVIR [Concomitant]
     Indication: ENCEPHALITIS
     Route: 042
     Dates: start: 20090214
  7. AMPICILLIN [Concomitant]
     Indication: MENINGOENCEPHALITIS BACTERIAL
     Route: 041
     Dates: start: 20090214
  8. ALEVIATIN [Concomitant]
     Indication: CONVULSION
     Route: 041
     Dates: start: 20090214, end: 20090219
  9. ISONIAZID [Concomitant]
     Route: 048
     Dates: start: 20090215
  10. PYRAZINAMIDE [Concomitant]
     Route: 048
     Dates: start: 20090215
  11. GLYCEOL [Concomitant]
     Route: 041
     Dates: start: 20090215
  12. DORMICUM [Concomitant]
     Indication: CONVULSION PROPHYLAXIS
     Route: 041
     Dates: start: 20090216, end: 20090219
  13. DIAZEPAM [Concomitant]
     Route: 065

REACTIONS (3)
  - BRADYARRHYTHMIA [None]
  - LACTIC ACIDOSIS [None]
  - RHABDOMYOLYSIS [None]
